FAERS Safety Report 10219261 (Version 1)
Quarter: 2014Q2

REPORT INFORMATION
  Report Type: Spontaneous
  Country: US (occurrence: None)
  Receive Date: 20140604
  Receipt Date: 20140604
  Transmission Date: 20141212
  Serious: Yes (Hospitalization)
  Sender: FDA-Public Use
  Company Number: None

PATIENT
  Age: 61 Year
  Sex: Male

DRUGS (3)
  1. RIBAPAK [Suspect]
     Indication: CHRONIC HEPATITIS C
     Dosage: 600 MG AM, 400 MG PM
     Route: 048
     Dates: start: 20140417
  2. SOVALDI [Concomitant]
  3. PEGASYS PROCLICK [Concomitant]

REACTIONS (3)
  - Dizziness [None]
  - Loss of consciousness [None]
  - Influenza like illness [None]
